FAERS Safety Report 8363698-1 (Version None)
Quarter: 2012Q2

REPORT INFORMATION
  Report Type: 
  Country: None (occurrence: None)
  Receive Date: 20120516
  Receipt Date: 20120505
  Transmission Date: 20120825
  Serious: Yes (Hospitalization, Other)
  Sender: FDA-Public Use
  Company Number: CA-JNJFOC-20120506868

PATIENT
  Sex: Male

DRUGS (7)
  1. GRAVOL TAB [Concomitant]
     Indication: PREMEDICATION
     Route: 048
  2. REMICADE [Suspect]
     Indication: PSORIASIS
     Dosage: ON INFLIXIMAB 7 YEARS AGO.
     Route: 042
  3. TYLENOL (CAPLET) [Concomitant]
     Indication: PREMEDICATION
     Route: 048
  4. REMICADE [Suspect]
     Dosage: 2ND LOADING DOSE 500 MG (ALSO REPORTED AS 600 MG)
     Route: 042
     Dates: start: 20120505, end: 20120505
  5. REMICADE [Suspect]
     Dosage: LOADING DOSE 500 MG (ALSO REPORTED AS 600 MG)
     Route: 042
     Dates: start: 20120401
  6. HYDROCORTISONE [Concomitant]
     Indication: PREMEDICATION
     Route: 042
  7. BENADRYL [Concomitant]
     Indication: PREMEDICATION
     Route: 048

REACTIONS (9)
  - CHEST DISCOMFORT [None]
  - INFUSION RELATED REACTION [None]
  - SENSORY DISTURBANCE [None]
  - HYPOAESTHESIA ORAL [None]
  - URTICARIA [None]
  - PHARYNGEAL OEDEMA [None]
  - COUGH [None]
  - WHEEZING [None]
  - DYSPNOEA [None]
